FAERS Safety Report 13008788 (Version 4)
Quarter: 2020Q3

REPORT INFORMATION
  Report Type: Report from Study
  Country: IT (occurrence: IT)
  Receive Date: 20161208
  Receipt Date: 20200708
  Transmission Date: 20201102
  Serious: Yes (Other)
  Sender: FDA-Public Use
  Company Number: IT-AEGERION PHARMACEUTICALS INC-AEGR002856

PATIENT

DRUGS (15)
  1. VITAMIN D [Concomitant]
     Active Substance: VITAMIN D NOS
     Indication: PRODUCT USED FOR UNKNOWN INDICATION
     Dosage: UNK
     Route: 065
  2. LOJUXTA AMRYT [Suspect]
     Active Substance: LOMITAPIDE MESYLATE
     Dosage: 10 MG, QD
     Route: 048
     Dates: start: 20140226, end: 20140324
  3. ACENOCUMAROL [Concomitant]
     Active Substance: ACENOCOUMAROL
     Indication: ANTICOAGULANT THERAPY
     Dosage: SEE INR, MG, QD
     Route: 048
     Dates: start: 2009
  4. SILACT [Concomitant]
     Indication: SUPPLEMENTATION THERAPY
     Dosage: 4500 UI, QD
     Route: 048
     Dates: start: 20140123
  5. LOJUXTA AMRYT [Suspect]
     Active Substance: LOMITAPIDE MESYLATE
     Dosage: 30 MG, QD
     Route: 048
     Dates: start: 20150324
  6. DESOGESTREL [Concomitant]
     Active Substance: DESOGESTREL
     Indication: ORAL CONTRACEPTION
     Dosage: 75 MCG, QD
     Route: 048
     Dates: start: 20150127
  7. IRON [Concomitant]
     Active Substance: IRON
     Indication: SUPPLEMENTATION THERAPY
     Dosage: 30 DROPS, QD
     Route: 048
     Dates: start: 1996
  8. OMEPRAZOLE. [Concomitant]
     Active Substance: OMEPRAZOLE
     Indication: GASTROINTESTINAL DISORDER THERAPY
     Dosage: 20 MG, QD
     Route: 048
     Dates: start: 2008
  9. LOJUXTA AMRYT [Suspect]
     Active Substance: LOMITAPIDE MESYLATE
     Dosage: 20 MG, QD
     Route: 048
     Dates: start: 20140506, end: 20141006
  10. LOJUXTA AMRYT [Suspect]
     Active Substance: LOMITAPIDE MESYLATE
     Indication: TYPE IIA HYPERLIPIDAEMIA
     Dosage: 5 MG, QD
     Route: 048
     Dates: start: 20140123, end: 20140225
  11. LOJUXTA AMRYT [Suspect]
     Active Substance: LOMITAPIDE MESYLATE
     Dosage: 10 MG, QD
     Route: 048
     Dates: start: 20140403, end: 20140501
  12. LOJUXTA AMRYT [Suspect]
     Active Substance: LOMITAPIDE MESYLATE
     Dosage: 20 MG, QD
     Route: 048
     Dates: start: 20141007, end: 20150108
  13. SURSUM [Concomitant]
     Indication: SUPPLEMENTATION THERAPY
     Dosage: 400 UI, QD
     Route: 048
     Dates: start: 20140123
  14. LOJUXTA AMRYT [Suspect]
     Active Substance: LOMITAPIDE MESYLATE
     Dosage: 30 MG, QD
     Route: 048
     Dates: start: 20150109, end: 20150312
  15. FOLIC ACID. [Concomitant]
     Active Substance: FOLIC ACID
     Indication: SUPPLEMENTATION THERAPY
     Dosage: 15 MG, QD
     Route: 048
     Dates: start: 2008

REACTIONS (4)
  - Alanine aminotransferase increased [Unknown]
  - Hepatic steatosis [Unknown]
  - Aspartate aminotransferase increased [Unknown]
  - Therapy interrupted [Recovered/Resolved]

NARRATIVE: CASE EVENT DATE: 20140324
